FAERS Safety Report 24253995 (Version 1)
Quarter: 2024Q3

REPORT INFORMATION
  Report Type: Spontaneous
  Country: FR (occurrence: FR)
  Receive Date: 20240827
  Receipt Date: 20240827
  Transmission Date: 20241017
  Serious: Yes (Other)
  Sender: FRESENIUS KABI
  Company Number: None

PATIENT
  Age: 78 Year
  Sex: Male
  Weight: 69 kg

DRUGS (6)
  1. ACETAMINOPHEN [Suspect]
     Active Substance: ACETAMINOPHEN
     Indication: Pain
     Route: 042
     Dates: start: 20240724
  2. PROPOFOL [Suspect]
     Active Substance: PROPOFOL
     Indication: General anaesthesia
     Route: 042
     Dates: start: 20240724, end: 20240724
  3. LINEZOLID [Suspect]
     Active Substance: LINEZOLID
     Indication: Infection prophylaxis
     Route: 042
  4. CEFOXITIN [Suspect]
     Active Substance: CEFOXITIN SODIUM
     Indication: Infection prophylaxis
     Route: 042
     Dates: start: 20240724, end: 20240724
  5. PIPERACILLIN SODIUM\TAZOBACTAM SODIUM [Suspect]
     Active Substance: PIPERACILLIN SODIUM\TAZOBACTAM SODIUM
     Indication: Infection prophylaxis
     Route: 042
  6. KETAMINE [Suspect]
     Active Substance: KETAMINE
     Indication: General anaesthesia
     Route: 042
     Dates: start: 20240724, end: 20240724

REACTIONS (3)
  - Jaundice [Not Recovered/Not Resolved]
  - Hyperbilirubinaemia [Not Recovered/Not Resolved]
  - Mixed liver injury [Recovered/Resolved]

NARRATIVE: CASE EVENT DATE: 20240725
